FAERS Safety Report 11594627 (Version 1)
Quarter: 2015Q4

REPORT INFORMATION
  Report Type: Report from Study
  Country: BR (occurrence: BR)
  Receive Date: 20151005
  Receipt Date: 20151005
  Transmission Date: 20160304
  Serious: Yes (Hospitalization)
  Sender: FDA-Public Use
  Company Number: BR-ABBVIE-15K-020-1472455-00

PATIENT
  Age: 33 Year
  Sex: Male
  Weight: 87 kg

DRUGS (3)
  1. OMEPRAZOLE. [Concomitant]
     Active Substance: OMEPRAZOLE
     Indication: PROPHYLAXIS
     Route: 048
     Dates: start: 20150610
  2. OMEPRAZOLE. [Concomitant]
     Active Substance: OMEPRAZOLE
     Indication: GASTRIC DISORDER
     Route: 048
     Dates: start: 201502, end: 201506
  3. HUMIRA [Suspect]
     Active Substance: ADALIMUMAB
     Indication: CROHN^S DISEASE
     Route: 058
     Dates: start: 20130201, end: 201408

REACTIONS (21)
  - Oesophagitis [Recovered/Resolved]
  - Aphthous ulcer [Recovering/Resolving]
  - Uveitis [Recovering/Resolving]
  - Pain [Recovered/Resolved]
  - Mucous stools [Recovered/Resolved]
  - Inflammation [Recovered/Resolved]
  - Abdominal pain upper [Recovered/Resolved]
  - Rash [Recovering/Resolving]
  - Influenza [Recovering/Resolving]
  - Aphthous ulcer [Recovered/Resolved]
  - Rash [Recovered/Resolved]
  - Gastrooesophageal reflux disease [Recovered/Resolved]
  - Uveitis [Recovered/Resolved]
  - Oesophagitis [Recovering/Resolving]
  - Haemorrhage [Recovered/Resolved]
  - Colitis ulcerative [Recovering/Resolving]
  - Flatulence [Recovered/Resolved]
  - Diarrhoea [Unknown]
  - Secondary immunodeficiency [Unknown]
  - Viral infection [Recovered/Resolved]
  - Dyspepsia [Recovered/Resolved]

NARRATIVE: CASE EVENT DATE: 20140728
